FAERS Safety Report 9408176 (Version 2)
Quarter: 2013Q3

REPORT INFORMATION
  Report Type: Spontaneous
  Country: US (occurrence: US)
  Receive Date: 20130718
  Receipt Date: 20130806
  Transmission Date: 20140515
  Serious: Yes (Other)
  Sender: FDA-Public Use
  Company Number: US-B.I. PHARMACEUTICALS,INC./RIDGEFIELD-2013-BI-20784BP

PATIENT
  Age: 75 Year
  Sex: Female
  Weight: 60 kg

DRUGS (12)
  1. COMBIVENT [Suspect]
     Indication: CHRONIC OBSTRUCTIVE PULMONARY DISEASE
     Dosage: STRENGTH: 20 MCG / 100 MCG; DAILY DOSE: 80 MCG/ 400 MCG
     Route: 055
     Dates: start: 20130708, end: 20130711
  2. COMBIVENT [Suspect]
     Indication: ASTHMA
     Dosage: 20-100MCG,1 PUFF DAILY
     Dates: start: 20130709, end: 20130712
  3. COMBIVENT [Suspect]
     Indication: DYSPNOEA
  4. COMBIVENT [Suspect]
     Indication: CHRONIC OBSTRUCTIVE PULMONARY DISEASE
     Dosage: STRENGTH: 18 MCG / 103 MCG; DAILY DOSE: 144MCG/ 824 MCG
     Route: 055
     Dates: start: 1997, end: 20130707
  5. COMBIVENT [Suspect]
     Indication: ASTHMA
     Dosage: STRENGTH: 18 MCG / 103 MCG; DAILY DOSE: 144MCG/824MCG
     Route: 055
     Dates: start: 20130711
  6. ADVAIR 100-50 [Concomitant]
     Indication: CHRONIC OBSTRUCTIVE PULMONARY DISEASE
     Dosage: (INHALATION SOLUTION) STRENGTH: 50MCG/100MCG; DAILY DOSE: 50MCG/100MCG
     Route: 055
  7. ADVAIR 100-50 [Concomitant]
     Indication: ASTHMA
     Dosage: 20-100MCG,FORMULATION DRY POWDER INHALER(DISKUS)
     Dates: start: 2005
  8. LOSARTAN [Concomitant]
     Indication: HYPERTENSION
     Dosage: 25 MG
     Route: 048
  9. MATZIM LA [Concomitant]
     Indication: HYPERTENSION
     Dosage: 180 MG
     Route: 048
  10. MATZIM LA [Concomitant]
     Dosage: 180MG ER
     Route: 048
     Dates: start: 201107
  11. NEXIUM [Concomitant]
     Indication: GASTROOESOPHAGEAL REFLUX DISEASE
     Dosage: 40 MG
     Route: 048
     Dates: start: 201107
  12. COMBIVENT INHALER [Concomitant]
     Indication: CHRONIC OBSTRUCTIVE PULMONARY DISEASE
     Dosage: 1 PUF
     Route: 055
     Dates: start: 2004, end: 20130719

REACTIONS (11)
  - Dyspnoea [Recovered/Resolved]
  - Heart rate increased [Recovered/Resolved]
  - Chest pain [Recovered/Resolved]
  - Heart rate increased [Recovered/Resolved]
  - Pharyngeal oedema [Recovered/Resolved]
  - Swollen tongue [Recovered/Resolved]
  - Dyspnoea [Recovered/Resolved]
  - Neck pain [Recovered/Resolved]
  - Off label use [Recovered/Resolved]
  - Off label use [Recovered/Resolved]
  - Off label use [Not Recovered/Not Resolved]
